FAERS Safety Report 5446197-6 (Version None)
Quarter: 2007Q3

REPORT INFORMATION
  Report Type: 
  Country: None (occurrence: None)
  Receive Date: 20070731
  Receipt Date: 20070202
  Transmission Date: 20080115
  Serious: Yes (Other)
  Sender: FDA-Public Use
  Company Number: US-2007-003684

PATIENT
  Age: 29 Year
  Sex: Female

DRUGS (1)
  1. MAGNEVIST [Suspect]
     Dosage: 20 ML 1 DOSE, INTRAVENOUS
     Route: 042
     Dates: start: 20070126, end: 20070126

REACTIONS (5)
  - DYSPNOEA [None]
  - SWELLING FACE [None]
  - URTICARIA [None]
  - VOMITING [None]
  - WHEEZING [None]
